FAERS Safety Report 15485272 (Version 1)
Quarter: 2018Q4

REPORT INFORMATION
  Report Type: Spontaneous
  Country: US (occurrence: US)
  Receive Date: 20181010
  Receipt Date: 20181010
  Transmission Date: 20190205
  Serious: No
  Sender: FDA-Public Use
  Company Number: US-ROCHE-2128892

PATIENT
  Sex: Male

DRUGS (26)
  1. RANEXA [Concomitant]
     Active Substance: RANOLAZINE
  2. GABAPENTIN. [Concomitant]
     Active Substance: GABAPENTIN
  3. IMODIUM [Concomitant]
     Active Substance: LOPERAMIDE HYDROCHLORIDE
  4. PROMETHAZINE [Concomitant]
     Active Substance: PROMETHAZINE\PROMETHAZINE HYDROCHLORIDE
  5. LEVETIRACETAM. [Concomitant]
     Active Substance: LEVETIRACETAM
  6. MECLIZINE [Concomitant]
     Active Substance: MECLIZINE HYDROCHLORIDE
  7. LEVOTHYROXINE. [Concomitant]
     Active Substance: LEVOTHYROXINE
  8. FUROSEMIDE. [Concomitant]
     Active Substance: FUROSEMIDE
  9. ALLOPURINOL. [Concomitant]
     Active Substance: ALLOPURINOL
     Route: 065
  10. MAALOX (CALCIUM CARBONATE) [Concomitant]
  11. ACETAMINOPHEN. [Concomitant]
     Active Substance: ACETAMINOPHEN
  12. MIRALAX [Concomitant]
     Active Substance: POLYETHYLENE GLYCOL 3350
  13. ZELBORAF [Suspect]
     Active Substance: VEMURAFENIB
     Indication: SKIN CANCER
     Dosage: TAKE TWO TABLETS BY MOUTH EVERY TWELVE HOURS
     Route: 048
     Dates: start: 20170912
  14. TRAMADOL. [Concomitant]
     Active Substance: TRAMADOL
  15. MELOXICAM. [Concomitant]
     Active Substance: MELOXICAM
  16. LISINOPRIL. [Concomitant]
     Active Substance: LISINOPRIL
  17. CARBIDOPA/LEVODOPA [Concomitant]
     Active Substance: CARBIDOPA\LEVODOPA
  18. CARDIZEM [Concomitant]
     Active Substance: DILTIAZEM HYDROCHLORIDE
  19. ZOLPIDEM [Concomitant]
     Active Substance: ZOLPIDEM\ZOLPIDEM TARTRATE
  20. TAMSULOSIN [Concomitant]
     Active Substance: TAMSULOSIN
  21. SIMVASTATIN. [Concomitant]
     Active Substance: SIMVASTATIN
  22. ELIQUIS [Concomitant]
     Active Substance: APIXABAN
  23. METHOCARBAMOL. [Concomitant]
     Active Substance: METHOCARBAMOL
  24. ZOLOFT [Concomitant]
     Active Substance: SERTRALINE HYDROCHLORIDE
  25. LATUDA [Concomitant]
     Active Substance: LURASIDONE HYDROCHLORIDE
  26. ALPRAZOLAM. [Concomitant]
     Active Substance: ALPRAZOLAM

REACTIONS (1)
  - Rash [Not Recovered/Not Resolved]
